FAERS Safety Report 8928076 (Version 1)
Quarter: 2012Q4

REPORT INFORMATION
  Report Type: Spontaneous
  Country: US (occurrence: None)
  Receive Date: 20121120
  Receipt Date: 20121120
  Transmission Date: 20130627
  Serious: No
  Sender: FDA-Public Use
  Company Number: SPI201200260

PATIENT
  Age: 71 Year
  Sex: Female
  Weight: 66.7 kg

DRUGS (6)
  1. AMITIZA [Suspect]
     Indication: CONSTIPATION CHRONIC
     Route: 048
     Dates: start: 20121003, end: 20121004
  2. METFORMIN [Concomitant]
  3. LISINOPRIL [Concomitant]
  4. SIMVASTATIN [Concomitant]
  5. ASPIRIN [Concomitant]
  6. METOCLOPRAMIDE [Concomitant]

REACTIONS (8)
  - Dysphagia [None]
  - Dysgeusia [None]
  - Gastrooesophageal reflux disease [None]
  - Eructation [None]
  - Flatulence [None]
  - Infrequent bowel movements [None]
  - Drug ineffective [None]
  - Dyspnoea [None]
